FAERS Safety Report 8287680-8 (Version None)
Quarter: 2012Q2

REPORT INFORMATION
  Report Type: 
  Country: None (occurrence: None)
  Receive Date: 20120416
  Receipt Date: 20120412
  Transmission Date: 20120825
  Serious: Yes (Death, Hospitalization, Other)
  Sender: FDA-Public Use
  Company Number: PHHY2012MX025774

PATIENT
  Sex: Male

DRUGS (2)
  1. DIOVAN HCT [Suspect]
     Indication: HYPERTENSION
     Dosage: 1 DF (160 MG VALSARTAN AND 12.5 MG HYDROCHLOROTHIAZIDE) DAILY
     Dates: start: 20080301, end: 20120315
  2. PLAVIX [Concomitant]
     Dosage: 1 DF, DAILY
     Dates: start: 20080301

REACTIONS (9)
  - GASTROINTESTINAL DISORDER [None]
  - MULTI-ORGAN FAILURE [None]
  - INGUINAL HERNIA [None]
  - RENAL DISORDER [None]
  - PULMONARY OEDEMA [None]
  - BLOOD PRESSURE DECREASED [None]
  - MYOCARDIAL INFARCTION [None]
  - DIVERTICULITIS [None]
  - GASTROINTESTINAL HAEMORRHAGE [None]
